FAERS Safety Report 5729569-1 (Version None)
Quarter: 2008Q2

REPORT INFORMATION
  Report Type: 
  Country: None (occurrence: None)
  Receive Date: 20080501
  Receipt Date: 20080421
  Transmission Date: 20081010
  Serious: Yes (Death, Hospitalization)
  Sender: FDA-Public Use
  Company Number: 2008AP001042

PATIENT
  Age: 64 Year
  Sex: Female

DRUGS (2)
  1. CYCLOSPORINE [Suspect]
  2. METHYLPREDNISOLONE [Suspect]

REACTIONS (9)
  - ASPERGILLOSIS [None]
  - CYTOMEGALOVIRUS INFECTION [None]
  - ESCHAR [None]
  - ESCHERICHIA INFECTION [None]
  - GENERAL PHYSICAL HEALTH DETERIORATION [None]
  - IMPAIRED HEALING [None]
  - PYELONEPHRITIS [None]
  - RENAL TUBULAR NECROSIS [None]
  - SKIN ULCER [None]
